FAERS Safety Report 23830775 (Version 1)
Quarter: 2024Q2

REPORT INFORMATION
  Report Type: Spontaneous
  Country: US (occurrence: None)
  Receive Date: 20240507
  Receipt Date: 20240507
  Transmission Date: 20240716
  Serious: No
  Sender: FDA-Public Use
  Company Number: None

PATIENT
  Sex: Female

DRUGS (6)
  1. BOTOX [Suspect]
     Active Substance: ONABOTULINUMTOXINA
     Indication: Blepharospasm
     Dates: start: 20231220
  2. AZELASTINE [Concomitant]
  3. BUSPIRONE TAB [Concomitant]
  4. EPINASTINE [Concomitant]
     Active Substance: EPINASTINE
  5. LISINOPRIL [Concomitant]
     Active Substance: LISINOPRIL
  6. VITAMIN D-1000 [Concomitant]

REACTIONS (1)
  - Gallbladder operation [None]
